FAERS Safety Report 4630425-0 (Version None)
Quarter: 2005Q2

REPORT INFORMATION
  Report Type: 
  Country: None (occurrence: None)
  Receive Date: 20050406
  Receipt Date: 20050322
  Transmission Date: 20051028
  Serious: Yes (Hospitalization, Other)
  Sender: FDA-Public Use
  Company Number: C-05-0023

PATIENT
  Age: 50 Year
  Sex: Male
  Weight: 86.1834 kg

DRUGS (13)
  1. PROMETHAZINE HCL AND DEXTROMETHORPHAN HBR [Suspect]
     Indication: COUGH
     Dosage: 1-2 TSP 4 TIMES A DAY ORALLY
     Route: 048
     Dates: start: 20050308, end: 20050314
  2. MORPHINE [Concomitant]
  3. SOTALOL HCL [Concomitant]
  4. LISINOPRIL [Concomitant]
  5. NEURONTIN [Concomitant]
  6. BACLOFEN [Concomitant]
  7. XANAX [Concomitant]
  8. GEMFIBROZIL [Concomitant]
  9. NEXIUM [Concomitant]
  10. ECOTRIN [Concomitant]
  11. METHADONE HCL [Concomitant]
  12. FLONASE [Concomitant]
  13. TRILEPTAL [Concomitant]

REACTIONS (11)
  - AMNESIA [None]
  - ASTHENIA [None]
  - CLUMSINESS [None]
  - DRUG INTERACTION [None]
  - DYSPNOEA [None]
  - HEADACHE [None]
  - LETHARGY [None]
  - OVERDOSE [None]
  - PNEUMONIA [None]
  - TREMOR [None]
  - URINARY RETENTION [None]
